FAERS Safety Report 4836645-4 (Version None)
Quarter: 2005Q4

REPORT INFORMATION
  Report Type: 
  Country: None (occurrence: None)
  Receive Date: 20051121
  Receipt Date: 20051104
  Transmission Date: 20060501
  Serious: Yes (Other)
  Sender: FDA-Public Use
  Company Number: USA-2004-0013262

PATIENT
  Sex: Male

DRUGS (7)
  1. OXYCONTIN [Suspect]
     Indication: PAIN
     Dosage: SEE IMAGE
     Dates: end: 20020401
  2. REMERON [Concomitant]
  3. DIAZEPAM [Concomitant]
  4. ZOLOFT [Concomitant]
  5. CLONIDINE [Concomitant]
  6. MORPHINE SULFATE [Concomitant]
  7. AMITRIPTYLINE HCL [Concomitant]

REACTIONS (19)
  - ABDOMINAL PAIN UPPER [None]
  - ANXIETY [None]
  - ARTHRALGIA [None]
  - BACK PAIN [None]
  - CHOLELITHIASIS [None]
  - DELUSIONAL DISORDER, UNSPECIFIED TYPE [None]
  - DENTAL CARIES [None]
  - DEPRESSION [None]
  - DRUG DEPENDENCE [None]
  - DRUG TOLERANCE [None]
  - DRUG WITHDRAWAL SYNDROME [None]
  - GAIT DISTURBANCE [None]
  - GROIN PAIN [None]
  - NAUSEA [None]
  - OBSESSIVE-COMPULSIVE DISORDER [None]
  - PAIN [None]
  - PANIC ATTACK [None]
  - PARANOIA [None]
  - SLEEP DISORDER [None]
